FAERS Safety Report 5448503-5 (Version None)
Quarter: 2007Q3

REPORT INFORMATION
  Report Type: 
  Country: None (occurrence: None)
  Receive Date: 20070911
  Receipt Date: 20070828
  Transmission Date: 20080115
  Serious: Yes (Hospitalization)
  Sender: FDA-Public Use
  Company Number: US-ELI_LILLY_AND_COMPANY-US200708004356

PATIENT
  Age: 80 Year
  Sex: Female
  Weight: 40.816 kg

DRUGS (10)
  1. FORTEO [Suspect]
     Indication: OSTEOPOROSIS
     Dosage: 20 UG, DAILY (1/D)
     Dates: start: 20060724, end: 20070801
  2. DARVOCET [Concomitant]
  3. MEDROL [Concomitant]
  4. BENICAR [Concomitant]
  5. MIACALCIN [Concomitant]
  6. LEVOXYL [Concomitant]
  7. TOPROL-XL [Concomitant]
  8. PSORIATEC [Concomitant]
  9. CALCIUM [Concomitant]
  10. Z-GEN [Concomitant]

REACTIONS (4)
  - HERPES ZOSTER [None]
  - NAUSEA [None]
  - POST HERPETIC NEURALGIA [None]
  - VOMITING [None]
